FAERS Safety Report 8131387-4 (Version None)
Quarter: 2012Q1

REPORT INFORMATION
  Report Type: 
  Country: None (occurrence: None)
  Receive Date: 20120213
  Receipt Date: 20120131
  Transmission Date: 20120608
  Serious: Yes (Other)
  Sender: FDA-Public Use
  Company Number: ES-JNJFOC-20120201999

PATIENT
  Sex: Female
  Weight: 45 kg

DRUGS (4)
  1. FOLIC ACID [Concomitant]
     Indication: ILL-DEFINED DISORDER
     Dates: start: 20111121, end: 20111201
  2. STELARA [Suspect]
     Route: 058
     Dates: start: 20111214
  3. STELARA [Suspect]
     Indication: PSORIASIS
     Route: 058
     Dates: start: 20120202
  4. METHOTREXATE [Concomitant]
     Indication: ILL-DEFINED DISORDER
     Dates: start: 20111121, end: 20111201

REACTIONS (1)
  - OTITIS MEDIA ACUTE [None]
